FAERS Safety Report 11422869 (Version 1)
Quarter: 2015Q3

REPORT INFORMATION
  Report Type: Spontaneous
  Country: US (occurrence: None)
  Receive Date: 20150826
  Receipt Date: 20150826
  Transmission Date: 20151125
  Serious: Yes (Life-Threatening, Hospitalization, Disabling, Other)
  Sender: FDA-Public Use
  Company Number: None

PATIENT
  Age: 50 Year
  Sex: Male
  Weight: 89.6 kg

DRUGS (1)
  1. HUMIRA [Suspect]
     Active Substance: ADALIMUMAB
     Indication: CROHN^S DISEASE
     Route: 058

REACTIONS (7)
  - Multi-organ failure [None]
  - Lung infiltration [None]
  - Renal failure [None]
  - Vasculitis [None]
  - Meningitis [None]
  - Acute respiratory failure [None]
  - Histoplasmosis disseminated [None]

NARRATIVE: CASE EVENT DATE: 20150628
